FAERS Safety Report 16292744 (Version 1)
Quarter: 2019Q2

REPORT INFORMATION
  Report Type: Spontaneous
  Country: US (occurrence: US)
  Receive Date: 20190509
  Receipt Date: 20190509
  Transmission Date: 20190711
  Serious: Yes (Other)
  Sender: FDA-Public Use
  Company Number: US-ENDO PHARMACEUTICALS INC-2019-104094

PATIENT
  Sex: Male

DRUGS (1)
  1. PERCOCET [Suspect]
     Active Substance: ACETAMINOPHEN\OXYCODONE HYDROCHLORIDE
     Indication: PAIN
     Dosage: UNK UNKNOWN, UNKNOWN
     Route: 065

REACTIONS (7)
  - Hyperhidrosis [Unknown]
  - Mental disorder [Unknown]
  - Poisoning [Unknown]
  - Drug diversion [Unknown]
  - Hypokinesia [Unknown]
  - General physical condition abnormal [Unknown]
  - Drug abuse [Unknown]

NARRATIVE: CASE EVENT DATE: 2015
